FAERS Safety Report 4844217-0 (Version None)
Quarter: 2005Q4

REPORT INFORMATION
  Report Type: 
  Country: None (occurrence: None)
  Receive Date: 20051202
  Receipt Date: 20051128
  Transmission Date: 20060501
  Serious: Yes (Other)
  Sender: FDA-Public Use
  Company Number: US-GLAXOSMITHKLINE-A0584327A

PATIENT
  Sex: Female

DRUGS (2)
  1. REQUIP [Suspect]
     Indication: PARKINSON'S DISEASE
     Dosage: 12MG PER DAY
  2. NO CONCURRENT MEDICATION [Concomitant]

REACTIONS (4)
  - ERYTHEMA [None]
  - GANGRENE [None]
  - SKIN IRRITATION [None]
  - VASCULITIS [None]
